FAERS Safety Report 9553804 (Version 4)
Quarter: 2013Q4

REPORT INFORMATION
  Report Type: Report from Study
  Country: DE (occurrence: DE)
  Receive Date: 20130925
  Receipt Date: 20131025
  Transmission Date: 20140711
  Serious: Yes (Hospitalization)
  Sender: FDA-Public Use
  Company Number: DE-ROCHE-1275711

PATIENT
  Age: 66 Year
  Sex: Female
  Weight: 105 kg

DRUGS (9)
  1. PERTUZUMAB [Suspect]
     Indication: HER-2 POSITIVE BREAST CANCER
     Dosage: LOADING DOSE CYCLE 1 ONLY
     Route: 042
     Dates: start: 20130801, end: 20130801
  2. PERTUZUMAB [Suspect]
     Dosage: MAINTENANCE DOSE (START DATE ESTIMATED AS PER FREQUENCY)?DATE OF LAST DOSE PRIOR TO SAE ONSET: 21/AU
     Route: 042
     Dates: start: 20130821
  3. TRASTUZUMAB [Suspect]
     Indication: HER-2 POSITIVE BREAST CANCER
     Dosage: LOADING DOSE CYCLE 1 ONLY
     Route: 042
     Dates: start: 20130802, end: 20130802
  4. TRASTUZUMAB [Suspect]
     Dosage: MAINTENANCE DOSE (START DATE ESTIMATED AS PER FREQUENCY)?DATE OF LAST DOSE PRIOR TO SAE ONSET: 21/AU
     Route: 042
     Dates: start: 20130821
  5. VINORELBINE [Suspect]
     Indication: HER-2 POSITIVE BREAST CANCER
     Dosage: DATE OF LAST DOSE PRIOR TO SAE ONSET: 28/AUG/2013
     Route: 042
     Dates: start: 20130802
  6. BISOPROLOL [Concomitant]
     Route: 065
     Dates: start: 2009
  7. ZOMETA [Concomitant]
     Dosage: 4 MG EVERY 4
     Route: 065
     Dates: start: 20130819
  8. FENTANYL [Concomitant]
     Route: 065
     Dates: start: 20130806
  9. CIPROFLOXACIN [Concomitant]
     Route: 065
     Dates: start: 20130829, end: 20130907

REACTIONS (1)
  - Nausea [Recovered/Resolved]
